FAERS Safety Report 19332193 (Version 1)
Quarter: 2021Q2

REPORT INFORMATION
  Report Type: Spontaneous
  Country: UZ (occurrence: UZ)
  Receive Date: 20210529
  Receipt Date: 20210529
  Transmission Date: 20210717
  Serious: Yes (Death)
  Sender: FDA-Public Use
  Company Number: UZ-JNJFOC-20210541461

PATIENT
  Age: 47 Year
  Sex: Male
  Weight: 50 kg

DRUGS (4)
  1. LINEZOLID. [Suspect]
     Active Substance: LINEZOLID
     Indication: TUBERCULOSIS
     Route: 048
     Dates: start: 20210416, end: 20210507
  2. SIRTURO [Suspect]
     Active Substance: BEDAQUILINE FUMARATE
     Indication: TUBERCULOSIS
     Route: 048
     Dates: start: 20210416, end: 20210507
  3. CLOFAZIMINE [Suspect]
     Active Substance: CLOFAZIMINE
     Indication: TUBERCULOSIS
     Route: 048
     Dates: start: 20210416, end: 20210507
  4. MOXIFLOXACIN. [Suspect]
     Active Substance: MOXIFLOXACIN
     Indication: TUBERCULOSIS
     Route: 048
     Dates: start: 20210416, end: 20210507

REACTIONS (5)
  - Pericarditis constrictive [Fatal]
  - Pulmonary embolism [Fatal]
  - Tuberculosis [Fatal]
  - Chronic obstructive pulmonary disease [Fatal]
  - Gastrointestinal haemorrhage [Fatal]
